FAERS Safety Report 12157505 (Version 1)
Quarter: 2016Q1

REPORT INFORMATION
  Report Type: Spontaneous
  Country: FR (occurrence: FR)
  Receive Date: 20160308
  Receipt Date: 20160308
  Transmission Date: 20160526
  Serious: Yes (Hospitalization)
  Sender: FDA-Public Use
  Company Number: FR-ACCORD-038635

PATIENT
  Age: 64 Year
  Sex: Male

DRUGS (8)
  1. ZOPHREN [Concomitant]
     Active Substance: ONDANSETRON
  2. FOLINIC ACID [Concomitant]
     Active Substance: LEUCOVORIN
  3. CAMPTO [Concomitant]
     Active Substance: IRINOTECAN
     Indication: ADENOCARCINOMA PANCREAS
     Dosage: 12TH CYCLE
     Route: 042
     Dates: start: 20160111, end: 20160111
  4. FLUOROURACIL ACCORD [Suspect]
     Active Substance: FLUOROURACIL
     Indication: ADENOCARCINOMA PANCREAS
     Route: 042
     Dates: start: 20160111, end: 20160112
  5. SOLU-MEDROL [Concomitant]
     Active Substance: METHYLPREDNISOLONE SODIUM SUCCINATE
  6. ATROPINE. [Concomitant]
     Active Substance: ATROPINE
  7. OXALIPLATIN ACCORD [Concomitant]
     Active Substance: OXALIPLATIN
     Indication: ADENOCARCINOMA PANCREAS
     Dosage: STRENGTH : 5 MG/ML, 12TH CYCLE
     Route: 042
     Dates: start: 20160111, end: 20160112
  8. EMEND [Concomitant]
     Active Substance: APREPITANT

REACTIONS (3)
  - Abdominal pain upper [Unknown]
  - Arteriospasm coronary [Recovered/Resolved]
  - Electrocardiogram abnormal [Recovered/Resolved]

NARRATIVE: CASE EVENT DATE: 20160112
